FAERS Safety Report 7025598-9 (Version None)
Quarter: 2010Q4

REPORT INFORMATION
  Report Type: 
  Country: None (occurrence: None)
  Receive Date: 20101003
  Receipt Date: 20100927
  Transmission Date: 20110411
  Serious: Yes (Disabling, Other)
  Sender: FDA-Public Use
  Company Number: PHHY2010US48491

PATIENT
  Sex: Female

DRUGS (12)
  1. RECLAST [Suspect]
     Indication: OSTEOPOROSIS
     Dosage: UNK
     Dates: start: 20091104
  2. BENICAR [Concomitant]
  3. LEXAPRO [Concomitant]
  4. MECLIZINE [Concomitant]
  5. PROTONIX [Concomitant]
  6. TYLENOL [Concomitant]
  7. GLUCOSAMINE [Concomitant]
  8. XANAX [Concomitant]
  9. OLMESARTAN MEDOXOMIL [Concomitant]
  10. PANTOPRAZOLE [Concomitant]
  11. MECLIZINE [Concomitant]
  12. HYDROCHLOROTHIAZIDE [Concomitant]

REACTIONS (18)
  - ABDOMINAL DISCOMFORT [None]
  - ANXIETY [None]
  - ARTHRALGIA [None]
  - ATRIAL FIBRILLATION [None]
  - BLOOD PRESSURE FLUCTUATION [None]
  - CHILLS [None]
  - DEPRESSED MOOD [None]
  - DIZZINESS [None]
  - DYSPEPSIA [None]
  - FATIGUE [None]
  - HEADACHE [None]
  - HYPERTENSION [None]
  - INSOMNIA [None]
  - MYALGIA [None]
  - NAUSEA [None]
  - NON-CARDIAC CHEST PAIN [None]
  - PAIN [None]
  - VERTIGO [None]
